FAERS Safety Report 4381579-5 (Version None)
Quarter: 2004Q2

REPORT INFORMATION
  Report Type: 
  Country: None (occurrence: None)
  Receive Date: 20040614
  Receipt Date: 20031105
  Transmission Date: 20050107
  Serious: Yes (Hospitalization)
  Sender: FDA-Public Use
  Company Number: WAES 0311USA00434

PATIENT
  Sex: Male

DRUGS (2)
  1. COZAAR [Suspect]
     Dosage: 50 MG/DAILY/PO;  100 MG/DAILY/PO
     Route: 048
     Dates: start: 20010101, end: 20030801
  2. COZAAR [Suspect]
     Dosage: 50 MG/DAILY/PO;  100 MG/DAILY/PO
     Route: 048
     Dates: start: 20030801

REACTIONS (2)
  - BLOOD CREATININE INCREASED [None]
  - BLOOD POTASSIUM INCREASED [None]
